FAERS Safety Report 14842305 (Version 1)
Quarter: 2018Q2

REPORT INFORMATION
  Report Type: Spontaneous
  Country: TR (occurrence: TR)
  Receive Date: 20180503
  Receipt Date: 20180503
  Transmission Date: 20180711
  Serious: Yes (Hospitalization)
  Sender: FDA-Public Use
  Company Number: TR-JNJFOC-20180438482

PATIENT
  Age: 3 Year

DRUGS (1)
  1. XARELTO [Suspect]
     Active Substance: RIVAROXABAN
     Indication: PRODUCT USED FOR UNKNOWN INDICATION
     Route: 048
     Dates: start: 20180421

REACTIONS (1)
  - Accidental exposure to product by child [Recovered/Resolved]

NARRATIVE: CASE EVENT DATE: 20180421
